FAERS Safety Report 21725977 (Version 1)
Quarter: 2022Q4

REPORT INFORMATION
  Report Type: Spontaneous
  Country: US (occurrence: US)
  Receive Date: 20221214
  Receipt Date: 20221214
  Transmission Date: 20230113
  Serious: Yes (Hospitalization)
  Sender: FDA-Public Use
  Company Number: US-STRIDES ARCOLAB LIMITED-2022SP005096

PATIENT
  Age: 13 Month
  Sex: Female

DRUGS (9)
  1. PROPRANOLOL [Suspect]
     Active Substance: PROPRANOLOL HYDROCHLORIDE
     Indication: Long QT syndrome
     Dosage: 12.4 MILLIGRAM, TID
     Route: 065
  2. PROPRANOLOL [Suspect]
     Active Substance: PROPRANOLOL HYDROCHLORIDE
     Indication: Ventricular fibrillation
     Dosage: 4.5 MILLIGRAM/KILOGRAM, PER DAY
     Route: 065
  3. PROPRANOLOL [Suspect]
     Active Substance: PROPRANOLOL HYDROCHLORIDE
     Indication: Ventricular tachycardia
     Dosage: UNK (DOSE INCREASED)
     Route: 065
  4. PROPRANOLOL [Suspect]
     Active Substance: PROPRANOLOL HYDROCHLORIDE
     Indication: Torsade de pointes
  5. FLECAINIDE [Suspect]
     Active Substance: FLECAINIDE
     Indication: Long QT syndrome
     Dosage: 10 MILLIGRAM, 0.5 DAY
     Route: 065
  6. MEXILETINE [Suspect]
     Active Substance: MEXILETINE
     Indication: Long QT syndrome
     Dosage: 7 MILLIGRAM/KILOGRAM
     Route: 065
  7. MEXILETINE [Suspect]
     Active Substance: MEXILETINE
     Indication: Ventricular fibrillation
     Dosage: UNK (DOSE INCREASED)
     Route: 065
  8. MEXILETINE [Suspect]
     Active Substance: MEXILETINE
     Indication: Ventricular tachycardia
  9. MEXILETINE [Suspect]
     Active Substance: MEXILETINE
     Indication: Torsade de pointes

REACTIONS (1)
  - Drug ineffective [Unknown]
